FAERS Safety Report 18945251 (Version 3)
Quarter: 2021Q2

REPORT INFORMATION
  Report Type: Other
  Country: GB (occurrence: GB)
  Receive Date: 20210226
  Receipt Date: 20210408
  Transmission Date: 20210717
  Serious: Yes (Other)
  Sender: FDA-Public Use
  Company Number: GB-ROCHE-2123912

PATIENT
  Age: 61 Year
  Sex: Female

DRUGS (6)
  1. TRASTUZUMAB EMTANSINE [Suspect]
     Active Substance: ADO-TRASTUZUMAB EMTANSINE
     Indication: BREAST CANCER METASTATIC
     Route: 042
     Dates: start: 20161215
  2. DOCETAXEL. [Suspect]
     Active Substance: DOCETAXEL
     Indication: BREAST CANCER METASTATIC
     Route: 042
     Dates: start: 20150507, end: 20150820
  3. PERTUZUMAB. [Suspect]
     Active Substance: PERTUZUMAB
     Indication: BREAST CANCER METASTATIC
     Route: 042
     Dates: start: 20150528, end: 201606
  4. TRASTUZUMAB. [Suspect]
     Active Substance: TRASTUZUMAB
     Indication: BREAST CANCER METASTATIC
     Route: 042
     Dates: start: 20150528, end: 201606
  5. TRASTUZUMAB. [Suspect]
     Active Substance: TRASTUZUMAB
     Dosage: LOADING DOSE
     Route: 042
     Dates: start: 20150507, end: 20150507
  6. PERTUZUMAB. [Suspect]
     Active Substance: PERTUZUMAB
     Dosage: LOADING DOSE
     Route: 042
     Dates: start: 20150506, end: 20150506

REACTIONS (1)
  - Ulcerative keratitis [Recovered/Resolved]

NARRATIVE: CASE EVENT DATE: 20171228
